FAERS Safety Report 7772790-1 (Version None)
Quarter: 2011Q3

REPORT INFORMATION
  Report Type: 
  Country: None (occurrence: None)
  Receive Date: 20110922
  Receipt Date: 20100217
  Transmission Date: 20111222
  Serious: No
  Sender: FDA-Public Use
  Company Number: US-ASTRAZENECA-2008UW27567

PATIENT
  Age: 29 Year
  Sex: Female
  Weight: 113.4 kg

DRUGS (5)
  1. SEROQUEL [Suspect]
     Indication: BIPOLAR DISORDER
     Dosage: 100 MG, 25 MG
     Route: 048
     Dates: start: 20060717, end: 20070420
  2. SEROQUEL [Suspect]
     Indication: SLEEP DISORDER
     Dosage: 100 MG, 25 MG
     Route: 048
     Dates: start: 20060717, end: 20070420
  3. CLOZAPINE [Concomitant]
     Dates: start: 19970101
  4. SEROQUEL [Suspect]
     Indication: DEPRESSION
     Dosage: 100 MG, 25 MG
     Route: 048
     Dates: start: 20060717, end: 20070420
  5. CLONAZEPAM [Concomitant]
     Dates: start: 20060717

REACTIONS (3)
  - TYPE 2 DIABETES MELLITUS [None]
  - JOINT INJURY [None]
  - INTERVERTEBRAL DISC DISORDER [None]
